FAERS Safety Report 13506439 (Version 1)
Quarter: 2017Q2

REPORT INFORMATION
  Report Type: Spontaneous
  Country: US (occurrence: US)
  Receive Date: 20170502
  Receipt Date: 20170502
  Transmission Date: 20170830
  Serious: No
  Sender: FDA-Public Use
  Company Number: US-ROCHE-1271127

PATIENT
  Sex: Female

DRUGS (3)
  1. 5-FU [Concomitant]
     Active Substance: FLUOROURACIL
     Indication: COLORECTAL CANCER
     Route: 065
     Dates: start: 2013, end: 20130530
  2. CIPROFLOXACIN. [Concomitant]
     Active Substance: CIPROFLOXACIN
     Dosage: WITH DENTAL WORK OR OPERATION
     Route: 065
  3. AVASTIN [Suspect]
     Active Substance: BEVACIZUMAB
     Indication: COLORECTAL CANCER
     Dosage: EVERY OTHER WEEK, LAST DOSE OF BEVACIZUMAB RECEIVED ON 22/AUG/2013
     Route: 042
     Dates: start: 201303

REACTIONS (13)
  - Blood pressure increased [Not Recovered/Not Resolved]
  - Flatulence [Recovered/Resolved]
  - Proctalgia [Recovered/Resolved]
  - Headache [Recovered/Resolved]
  - Diarrhoea [Not Recovered/Not Resolved]
  - Arthralgia [Not Recovered/Not Resolved]
  - Stress [Unknown]
  - Vision blurred [Not Recovered/Not Resolved]
  - Abdominal pain upper [Not Recovered/Not Resolved]
  - Visual impairment [Not Recovered/Not Resolved]
  - Astigmatism [Not Recovered/Not Resolved]
  - Gastrointestinal oedema [Recovered/Resolved]
  - Anorectal discomfort [Recovered/Resolved]
